FAERS Safety Report 19620643 (Version 1)
Quarter: 2021Q3

REPORT INFORMATION
  Report Type: Spontaneous
  Country: US (occurrence: US)
  Receive Date: 20210728
  Receipt Date: 20210728
  Transmission Date: 20211014
  Serious: No
  Sender: FDA-Public Use
  Company Number: US-ASTRAZENECA-2021A352204

PATIENT
  Age: 722 Month
  Sex: Female
  Weight: 54.4 kg

DRUGS (5)
  1. CLOBETASOL [Concomitant]
     Active Substance: CLOBETASOL
     Indication: PROPHYLAXIS
     Route: 061
     Dates: start: 20210420
  2. FARXIGA [Suspect]
     Active Substance: DAPAGLIFLOZIN PROPANEDIOL
     Indication: TYPE 2 DIABETES MELLITUS
     Route: 048
     Dates: start: 20201231, end: 202104
  3. FARXIGA [Suspect]
     Active Substance: DAPAGLIFLOZIN PROPANEDIOL
     Indication: TYPE 2 DIABETES MELLITUS
     Route: 048
     Dates: start: 202104, end: 20210420
  4. METFORMIN [Concomitant]
     Active Substance: METFORMIN HYDROCHLORIDE
     Indication: DIABETES MELLITUS
  5. JARDIANCE [Concomitant]
     Active Substance: EMPAGLIFLOZIN
     Indication: DIABETES MELLITUS

REACTIONS (10)
  - Discharge [Not Recovered/Not Resolved]
  - Glucose urine present [Unknown]
  - Blood glucose increased [Not Recovered/Not Resolved]
  - Drug ineffective [Unknown]
  - Noninfective gingivitis [Not Recovered/Not Resolved]
  - Pruritus [Recovered/Resolved]
  - Glycosylated haemoglobin increased [Not Recovered/Not Resolved]
  - Infection [Not Recovered/Not Resolved]
  - Fungal infection [Unknown]
  - Dysuria [Not Recovered/Not Resolved]

NARRATIVE: CASE EVENT DATE: 202102
